FAERS Safety Report 6525873-8 (Version None)
Quarter: 2010Q1

REPORT INFORMATION
  Report Type: 
  Country: None (occurrence: None)
  Receive Date: 20100104
  Receipt Date: 20091228
  Transmission Date: 20100710
  Serious: Yes (Hospitalization)
  Sender: FDA-Public Use
  Company Number: B0622381A

PATIENT
  Sex: Female

DRUGS (1)
  1. LANOXIN [Suspect]
     Indication: CARDIAC FAILURE
     Route: 042
     Dates: start: 20091012, end: 20091015

REACTIONS (2)
  - SKIN EXFOLIATION [None]
  - VOMITING [None]
